FAERS Safety Report 20884520 (Version 1)
Quarter: 2022Q2

REPORT INFORMATION
  Report Type: Spontaneous
  Country: US (occurrence: None)
  Receive Date: 20220527
  Receipt Date: 20220527
  Transmission Date: 20220721
  Serious: No
  Sender: FDA-Public Use
  Company Number: None

PATIENT
  Sex: Male

DRUGS (1)
  1. NEULASTA [Suspect]
     Active Substance: PEGFILGRASTIM
     Dosage: OTHER FREQUENCY : EVERY 21 DAYS;?
     Dates: start: 202112

REACTIONS (2)
  - Therapy interrupted [None]
  - Pneumothorax [None]
